FAERS Safety Report 7089377-9 (Version None)
Quarter: 2010Q4

REPORT INFORMATION
  Report Type: 
  Country: None (occurrence: None)
  Receive Date: 20101108
  Receipt Date: 20101104
  Transmission Date: 20110411
  Serious: Yes (Other)
  Sender: FDA-Public Use
  Company Number: US-PFIZER INC-2010140833

PATIENT
  Sex: Female

DRUGS (1)
  1. XALATAN [Suspect]

REACTIONS (6)
  - DYSPHAGIA [None]
  - EYE OPERATION [None]
  - FOOT OPERATION [None]
  - GAIT DISTURBANCE [None]
  - PANCREATIC NEOPLASM [None]
  - VISUAL ACUITY REDUCED [None]
